FAERS Safety Report 4440607-9 (Version None)
Quarter: 2004Q3

REPORT INFORMATION
  Report Type: 
  Country: None (occurrence: None)
  Receive Date: 20040901
  Receipt Date: 20040901
  Transmission Date: 20050211
  Serious: Yes (Hospitalization)
  Sender: FDA-Public Use
  Company Number: None

PATIENT
  Sex: Male
  Weight: 9.5255 kg

DRUGS (1)
  1. AUGMENTN [Suspect]
     Indication: OTITIS MEDIA
     Dosage: PO (PATIENT HAD 2 DOSES)
     Route: 048

REACTIONS (1)
  - RASH [None]
